FAERS Safety Report 5519339-1 (Version None)
Quarter: 2007Q4

REPORT INFORMATION
  Report Type: 
  Country: None (occurrence: None)
  Receive Date: 20071116
  Receipt Date: 20071114
  Transmission Date: 20080405
  Serious: Yes (Hospitalization)
  Sender: FDA-Public Use
  Company Number: HQWYE213620JUL06

PATIENT
  Sex: Female
  Weight: 60 kg

DRUGS (2)
  1. TRIQUILAR-28 [Suspect]
     Indication: ADENOMYOSIS
     Route: 048
     Dates: start: 20040908, end: 20060703
  2. RISPERDAL [Concomitant]
     Indication: SCHIZOPHRENIA
     Dosage: UNKNOWN
     Route: 065

REACTIONS (4)
  - DECREASED APPETITE [None]
  - HEADACHE [None]
  - THROMBOPHLEBITIS [None]
  - VENOUS THROMBOSIS [None]
